FAERS Safety Report 10203016 (Version 4)
Quarter: 2015Q3

REPORT INFORMATION
  Report Type: Report from Study
  Country: PL (occurrence: PL)
  Receive Date: 20140528
  Receipt Date: 20150925
  Transmission Date: 20151125
  Serious: Yes (Hospitalization, Other)
  Sender: FDA-Public Use
  Company Number: PL-ROCHE-1407226

PATIENT
  Age: 58 Year
  Sex: Female
  Weight: 60 kg

DRUGS (2)
  1. ROACTEMRA [Suspect]
     Active Substance: TOCILIZUMAB
     Indication: RHEUMATOID ARTHRITIS
     Dosage: LAST DOSE PRIOR TO THE EVENT: 28/APR/2014
     Route: 042
     Dates: start: 20140327, end: 20140428
  2. ROACTEMRA [Suspect]
     Active Substance: TOCILIZUMAB
     Route: 042
     Dates: end: 20150702

REACTIONS (5)
  - Diverticulitis [Unknown]
  - Hand fracture [Recovering/Resolving]
  - Chest pain [Unknown]
  - Fall [Unknown]
  - Peritonitis [Unknown]

NARRATIVE: CASE EVENT DATE: 20140519
